FAERS Safety Report 4798395-2 (Version None)
Quarter: 2005Q4

REPORT INFORMATION
  Report Type: 
  Country: None (occurrence: None)
  Receive Date: 20051014
  Receipt Date: 20051004
  Transmission Date: 20060501
  Serious: Yes (Other)
  Sender: FDA-Public Use
  Company Number: PHNU2005DE03344

PATIENT
  Sex: Male

DRUGS (3)
  1. CLOZARIL [Suspect]
     Dosage: DOSAGE INCREASED
     Route: 048
     Dates: end: 20050926
  2. CLOZARIL [Suspect]
     Dosage: 75 MG/DAY
     Route: 048
     Dates: start: 20050927, end: 20050930
  3. TREVILOR [Suspect]
     Dates: start: 20050928, end: 20050930

REACTIONS (6)
  - ANTICHOLINERGIC SYNDROME [None]
  - BRADYPHRENIA [None]
  - DELUSION [None]
  - DISORIENTATION [None]
  - DRUG INTERACTION [None]
  - RESTLESSNESS [None]
